FAERS Safety Report 15796857 (Version 1)
Quarter: 2019Q1

REPORT INFORMATION
  Report Type: Spontaneous
  Country: US (occurrence: US)
  Receive Date: 20190108
  Receipt Date: 20190108
  Transmission Date: 20190417
  Serious: No
  Sender: FDA-Public Use
  Company Number: US-APOTEX-2018AP012159

PATIENT
  Sex: Female

DRUGS (2)
  1. LAMOTRIGINE. [Suspect]
     Active Substance: LAMOTRIGINE
     Indication: PRODUCT USED FOR UNKNOWN INDICATION
     Dosage: UNK
     Route: 065
  2. LITHIUM CARBONATE. [Suspect]
     Active Substance: LITHIUM CARBONATE
     Indication: PRODUCT USED FOR UNKNOWN INDICATION
     Dosage: UNK
     Route: 065

REACTIONS (10)
  - Abnormal dreams [Recovering/Resolving]
  - Anxiety [Recovering/Resolving]
  - Thinking abnormal [Recovering/Resolving]
  - Insomnia [Recovering/Resolving]
  - Paranoia [Not Recovered/Not Resolved]
  - Panic attack [Recovered/Resolved]
  - Nightmare [Recovering/Resolving]
  - Weight increased [Recovering/Resolving]
  - Anger [Recovering/Resolving]
  - Irritability [Recovering/Resolving]
